FAERS Safety Report 10310597 (Version 1)
Quarter: 2014Q3

REPORT INFORMATION
  Report Type: Spontaneous
  Country: GB (occurrence: None)
  Receive Date: 20140714
  Receipt Date: 20140714
  Transmission Date: 20150326
  Serious: Yes (Disabling, Other)
  Sender: FDA-Public Use
  Company Number: AUR-APL-2014-07325

PATIENT
  Age: 28 Year
  Sex: Male
  Weight: 85.7 kg

DRUGS (5)
  1. LEVOTHYROXINE (LEVOTHYROXINE) [Concomitant]
     Active Substance: LEVOTHYROXINE
  2. LITHIUM CITRATE (LITHIUM CITRATE) [Concomitant]
  3. PROCHLORPERAZINE (PROCHLORPERAZINE) [Concomitant]
     Active Substance: PROCHLORPERAZINE
  4. LORAZEPAM (LORAZEPAM) [Concomitant]
     Active Substance: LORAZEPAM
  5. QUETIAPINE (QUETIAPINE) UNKNOWN, UNKNOWN [Suspect]
     Active Substance: QUETIAPINE
     Indication: BIPOLAR DISORDER
     Route: 048
     Dates: start: 20110710

REACTIONS (4)
  - Somnolence [None]
  - Malaise [None]
  - Influenza like illness [None]
  - Hangover [None]

NARRATIVE: CASE EVENT DATE: 20110710
